FAERS Safety Report 11096571 (Version 1)
Quarter: 2015Q2

REPORT INFORMATION
  Report Type: Other
  Country: SI (occurrence: SI)
  Receive Date: 20150507
  Receipt Date: 20150507
  Transmission Date: 20150821
  Serious: Yes (Hospitalization, Other)
  Sender: FDA-Public Use
  Company Number: SI-EMD SERONO-8023581

PATIENT
  Age: 34 Year
  Sex: Female

DRUGS (6)
  1. FOLLITROPIN ALFA [Suspect]
     Active Substance: FOLLITROPIN
     Indication: INFERTILITY FEMALE
  2. INSULIN [Concomitant]
     Active Substance: INSULIN NOS
     Indication: TYPE 1 DIABETES MELLITUS
  3. CETRORELIX [Suspect]
     Active Substance: CETRORELIX
     Indication: BLOOD LUTEINISING HORMONE ABNORMAL
  4. CETRORELIX [Suspect]
     Active Substance: CETRORELIX
     Indication: ASSISTED FERTILISATION
  5. HUMAN CHORIONIC GONADOTROPIN [Suspect]
     Active Substance: GONADOTROPHIN, CHORIONIC
     Indication: ASSISTED FERTILISATION
  6. FOLLITROPIN ALFA [Suspect]
     Active Substance: FOLLITROPIN
     Indication: ASSISTED FERTILISATION

REACTIONS (3)
  - Premature separation of placenta [Unknown]
  - Ovarian hyperstimulation syndrome [Unknown]
  - Heterotopic pregnancy [Recovered/Resolved]
